FAERS Safety Report 21838059 (Version 1)
Quarter: 2023Q1

REPORT INFORMATION
  Report Type: Report from Study
  Country: US (occurrence: US)
  Receive Date: 20230109
  Receipt Date: 20230109
  Transmission Date: 20230417
  Serious: Yes (Hospitalization, Other)
  Sender: FDA-Public Use
  Company Number: US-PFIZER INC-PV202300002220

PATIENT
  Age: 68 Year
  Sex: Male
  Weight: 123 kg

DRUGS (14)
  1. PAXLOVID [Suspect]
     Active Substance: NIRMATRELVIR\RITONAVIR
     Indication: COVID-19
  2. HUMIRA [Suspect]
     Active Substance: ADALIMUMAB
     Indication: Rheumatoid arthritis
     Dosage: 40 MG, EVERY 2 WEEKS
     Route: 058
     Dates: start: 20180913, end: 20220825
  3. HUMIRA [Suspect]
     Active Substance: ADALIMUMAB
     Dosage: UNK
     Dates: start: 20221007
  4. AZITHROMYCIN [Concomitant]
     Active Substance: AZITHROMYCIN
  5. VITAMIN D3 [Concomitant]
     Active Substance: CHOLECALCIFEROL
     Indication: Supplementation therapy
  6. HERBALS\TURMERIC [Concomitant]
     Active Substance: HERBALS\TURMERIC
     Indication: Inflammation
  7. VITAMIN B12 [Concomitant]
     Active Substance: CYANOCOBALAMIN
     Indication: Supplementation therapy
  8. METHOTREXATE [Concomitant]
     Active Substance: METHOTREXATE
     Indication: Rheumatoid arthritis
  9. LOSARTAN [Concomitant]
     Active Substance: LOSARTAN
     Indication: Hypertension
  10. FOLIC ACID [Concomitant]
     Active Substance: FOLIC ACID
     Indication: Drug therapy
  11. PEPCID [Concomitant]
     Active Substance: FAMOTIDINE
     Indication: Abdominal discomfort
  12. PEPCID [Concomitant]
     Active Substance: FAMOTIDINE
     Indication: Abnormal faeces
  13. KRILL OIL [Concomitant]
     Active Substance: DIETARY SUPPLEMENT\KRILL OIL
     Indication: Supplementation therapy
  14. MENADIONE [Concomitant]
     Active Substance: MENADIONE
     Indication: Supplementation therapy

REACTIONS (8)
  - Erythema [Recovered/Resolved]
  - Cellulitis [Recovered/Resolved]
  - Rheumatoid arthritis [Recovered/Resolved]
  - Wound complication [Recovered/Resolved]
  - Blister [Recovered/Resolved]
  - Thermal burn [Recovered/Resolved]
  - Wound infection [Recovered/Resolved]
  - Nasopharyngitis [Recovered/Resolved]

NARRATIVE: CASE EVENT DATE: 20220825
